FAERS Safety Report 22588014 (Version 1)
Quarter: 2023Q2

REPORT INFORMATION
  Report Type: Spontaneous
  Country: FR (occurrence: FR)
  Receive Date: 20230612
  Receipt Date: 20230612
  Transmission Date: 20230722
  Serious: Yes (Hospitalization)
  Sender: FDA-Public Use
  Company Number: None

PATIENT
  Age: 42 Year
  Sex: Male
  Weight: 88 kg

DRUGS (2)
  1. METHOTREXATE [Interacting]
     Active Substance: METHOTREXATE
     Indication: T-cell type acute leukaemia
     Dosage: 50MG 1X/WEEKS
     Route: 065
     Dates: start: 20230221, end: 20230411
  2. PURINETHOL [Interacting]
     Active Substance: MERCAPTOPURINE
     Indication: T-cell type acute leukaemia
     Dosage: 100 MILLIGRAM DAILY; 100MG 1X/D
     Route: 065
     Dates: start: 20230221, end: 20230411

REACTIONS (3)
  - Bilirubin conjugated increased [Recovering/Resolving]
  - Jaundice [Recovering/Resolving]
  - Drug interaction [Unknown]

NARRATIVE: CASE EVENT DATE: 20230409
